FAERS Safety Report 16863688 (Version 4)
Quarter: 2020Q1

REPORT INFORMATION
  Report Type: Spontaneous
  Country: JP (occurrence: JP)
  Receive Date: 20190927
  Receipt Date: 20200323
  Transmission Date: 20200409
  Serious: Yes (Hospitalization, Other)
  Sender: FDA-Public Use
  Company Number: JP-GLAXOSMITHKLINE-JP2019JPN173628

PATIENT
  Age: 47 Year
  Sex: Male

DRUGS (11)
  1. MEPOLIZUMAB [Suspect]
     Active Substance: MEPOLIZUMAB
     Indication: ASTHMA
     Dosage: 100 MG, EVERY 4 WEEKS
     Route: 058
     Dates: start: 20181108, end: 201910
  2. MEPOLIZUMAB [Suspect]
     Active Substance: MEPOLIZUMAB
     Indication: ASTHMA
  3. RISPERIDONE TABLETS [Concomitant]
     Active Substance: RISPERIDONE
     Dosage: 1 MG, QD
  4. LUNESTA TABLETS [Concomitant]
     Dosage: 2 MG, QD
  5. RECALBON TABLETS (JAPAN) [Concomitant]
     Dosage: 50 MG, EVERY 4 WEEKS
  6. PREDNISOLONE TABLETS [Concomitant]
     Active Substance: PREDNISOLONE
     Dosage: 13 MG, QD
  7. GASTER [Concomitant]
     Active Substance: FAMOTIDINE
     Dosage: 20 MG, QD
  8. BAKTAR TABLET [Concomitant]
     Dosage: 1 DF, QD
  9. ONETRAM [Concomitant]
     Active Substance: TRAMADOL HYDROCHLORIDE
     Dosage: 200 MG, QD
  10. TRAMAL [Concomitant]
     Active Substance: TRAMADOL
     Dosage: 25 MG, BID
  11. IMURAN TABLETS [Concomitant]
     Dosage: 50 MG, BID

REACTIONS (5)
  - Motor dysfunction [Not Recovered/Not Resolved]
  - Myasthenia gravis [Unknown]
  - Muscular weakness [Unknown]
  - Diplopia [Not Recovered/Not Resolved]
  - Ocular dysmetria [Unknown]

NARRATIVE: CASE EVENT DATE: 2019
